FAERS Safety Report 6016908-X (Version None)
Quarter: 2008Q4

REPORT INFORMATION
  Report Type: 
  Country: None (occurrence: None)
  Receive Date: 20081219
  Receipt Date: 20081217
  Transmission Date: 20090506
  Serious: Yes (Death, Life-Threatening)
  Sender: FDA-Public Use
  Company Number: 2006SP008984

PATIENT
  Age: 64 Year
  Sex: Male
  Weight: 51 kg

DRUGS (5)
  1. TEMODAL [Suspect]
     Indication: GLIOBLASTOMA MULTIFORME
     Dosage: 150 MG/M2; QD; PO, 200 MG/M2; QD; PO
     Route: 048
     Dates: start: 20061030, end: 20061103
  2. TEMODAL [Suspect]
     Indication: GLIOBLASTOMA MULTIFORME
     Dosage: 150 MG/M2; QD; PO, 200 MG/M2; QD; PO
     Route: 048
     Dates: start: 20061128, end: 20061202
  3. BETAMETHASONE [Concomitant]
  4. EXCEGRAN [Concomitant]
  5. PHENOBARBITAL TAB [Concomitant]

REACTIONS (8)
  - BACTERIAL INFECTION [None]
  - BRONCHITIS BACTERIAL [None]
  - DECUBITUS ULCER [None]
  - LYMPHOCYTE COUNT DECREASED [None]
  - PNEUMOCYSTIS JIROVECI PNEUMONIA [None]
  - PNEUMONIA CYTOMEGALOVIRAL [None]
  - RESPIRATORY FAILURE [None]
  - SPUTUM RETENTION [None]
